FAERS Safety Report 4652449-X (Version None)
Quarter: 2005Q2

REPORT INFORMATION
  Report Type: 
  Country: None (occurrence: None)
  Receive Date: 20050504
  Receipt Date: 20050425
  Transmission Date: 20051028
  Serious: Yes (Hospitalization)
  Sender: FDA-Public Use
  Company Number: FR-BRISTOL-MYERS SQUIBB COMPANY-12949384

PATIENT
  Age: 54 Year
  Sex: Male

DRUGS (1)
  1. ENDOXAN [Suspect]
     Indication: MULTIPLE MYELOMA
     Route: 042
     Dates: start: 20050120, end: 20050120

REACTIONS (3)
  - CHOLECYSTITIS CHRONIC [None]
  - PLATELET COUNT DECREASED [None]
  - TRANSAMINASES INCREASED [None]
